FAERS Safety Report 6006106-8 (Version None)
Quarter: 2008Q4

REPORT INFORMATION
  Report Type: 
  Country: None (occurrence: None)
  Receive Date: 20081216
  Receipt Date: 20081216
  Transmission Date: 20090506
  Serious: Yes (Other)
  Sender: FDA-Public Use
  Company Number: None

PATIENT
  Age: 42 Year
  Sex: Female
  Weight: 111.1313 kg

DRUGS (2)
  1. SUBOXONE [Suspect]
     Indication: DRUG DEPENDENCE
     Dosage: 20MGS. 1XPER DAY PO
     Route: 048
     Dates: start: 20080801, end: 20081213
  2. SUBOXONE [Suspect]
     Indication: PAIN
     Dosage: 20MGS. 1XPER DAY PO
     Route: 048
     Dates: start: 20080801, end: 20081213

REACTIONS (8)
  - APATHY [None]
  - DECREASED ACTIVITY [None]
  - DEPRESSION [None]
  - FATIGUE [None]
  - FEELING ABNORMAL [None]
  - PAIN [None]
  - PRODUCT QUALITY ISSUE [None]
  - SOMNOLENCE [None]
